FAERS Safety Report 19911242 (Version 1)
Quarter: 2021Q4

REPORT INFORMATION
  Report Type: Spontaneous
  Country: US (occurrence: US)
  Receive Date: 20211004
  Receipt Date: 20211004
  Transmission Date: 20220303
  Serious: No
  Sender: FDA-Public Use
  Company Number: 2021A730627

PATIENT
  Age: 51 Year
  Sex: Female
  Weight: 81.6 kg

DRUGS (7)
  1. BRILINTA [Suspect]
     Active Substance: TICAGRELOR
     Indication: Myocardial infarction
     Route: 048
  2. BRILINTA [Suspect]
     Active Substance: TICAGRELOR
     Indication: Coronary artery perforation
     Route: 048
  3. BRILINTA [Suspect]
     Active Substance: TICAGRELOR
     Indication: Stent placement
     Route: 048
  4. BRILINTA [Suspect]
     Active Substance: TICAGRELOR
     Indication: Myocardial infarction
     Route: 048
  5. BRILINTA [Suspect]
     Active Substance: TICAGRELOR
     Indication: Coronary artery perforation
     Route: 048
  6. BRILINTA [Suspect]
     Active Substance: TICAGRELOR
     Indication: Stent placement
     Route: 048
  7. ASPIRIN [Concomitant]
     Active Substance: ASPIRIN

REACTIONS (14)
  - Dyspnoea [Unknown]
  - Contusion [Unknown]
  - Haemorrhage [Unknown]
  - Heavy menstrual bleeding [Unknown]
  - Irregular breathing [Unknown]
  - Nocturnal dyspnoea [Unknown]
  - Bradycardia [Unknown]
  - Tachycardia [Unknown]
  - Hypotension [Unknown]
  - Arrhythmia [Unknown]
  - Dry skin [Unknown]
  - Skin fissures [Unknown]
  - Off label use [Unknown]
  - Product dose omission issue [Unknown]
